FAERS Safety Report 24555966 (Version 1)
Quarter: 2024Q4

REPORT INFORMATION
  Report Type: Spontaneous
  Country: IT (occurrence: IT)
  Receive Date: 20241028
  Receipt Date: 20241028
  Transmission Date: 20250114
  Serious: Yes (Other)
  Sender: BAYER HEALTHCARE PHARMACEUTICALS INC.
  Company Number: None

PATIENT
  Age: 80 Year
  Sex: Male

DRUGS (1)
  1. CIPROFLOXACIN [Suspect]
     Active Substance: CIPROFLOXACIN
     Indication: Infection
     Dosage: 400 MG, BID
     Route: 042
     Dates: start: 20231214, end: 20231216

REACTIONS (2)
  - Azotaemia [None]
  - Blood creatinine increased [None]

NARRATIVE: CASE EVENT DATE: 20231216
